FAERS Safety Report 9995952 (Version 1)
Quarter: 2014Q1

REPORT INFORMATION
  Report Type: Spontaneous
  Country: US (occurrence: US)
  Receive Date: 20140311
  Receipt Date: 20140311
  Transmission Date: 20141002
  Serious: Yes (Other)
  Sender: FDA-Public Use
  Company Number: US-BAYER-2014-033859

PATIENT
  Age: 36 Year
  Sex: Female

DRUGS (5)
  1. YAZ [Suspect]
  2. YASMIN [Suspect]
  3. TRIAMCINOLONE [Concomitant]
     Dosage: APPLY TWICE DAILY
     Dates: start: 20090107
  4. AZITHROMYCIN [Concomitant]
     Dosage: 250 MG, UNK
     Dates: start: 20090108
  5. TUSSIONEX [Concomitant]
     Dosage: 1 TEASPOON TWICE DAILY
     Dates: start: 20090207

REACTIONS (1)
  - Deep vein thrombosis [None]
